APPROVED DRUG PRODUCT: METOPROLOL TARTRATE
Active Ingredient: METOPROLOL TARTRATE
Strength: 100MG
Dosage Form/Route: TABLET;ORAL
Application: A208955 | Product #003 | TE Code: AB
Applicant: SCIEGEN PHARMACEUTICALS INC
Approved: Feb 5, 2020 | RLD: No | RS: No | Type: RX